FAERS Safety Report 8248999-X (Version None)
Quarter: 2012Q2

REPORT INFORMATION
  Report Type: 
  Country: None (occurrence: None)
  Receive Date: 20120402
  Receipt Date: 20120320
  Transmission Date: 20120825
  Serious: Yes (Hospitalization)
  Sender: FDA-Public Use
  Company Number: DE-BIOGENIDEC-2012BI001533

PATIENT
  Age: 33 Year
  Sex: Female
  Weight: 58 kg

DRUGS (2)
  1. AVONEX [Suspect]
     Indication: MULTIPLE SCLEROSIS
     Route: 030
     Dates: start: 20111216, end: 20120106
  2. AVONEX [Suspect]
     Route: 030
     Dates: start: 20120320

REACTIONS (4)
  - NAUSEA [None]
  - INFLUENZA LIKE ILLNESS [None]
  - CHOLELITHIASIS [None]
  - DECREASED APPETITE [None]
